FAERS Safety Report 8915419 (Version 1)
Quarter: 2012Q4

REPORT INFORMATION
  Report Type: 
  Country: US (occurrence: US)
  Receive Date: 20121119
  Receipt Date: 20121119
  Transmission Date: 20130627
  Serious: No
  Sender: FDA-Public Use
  Company Number: US-ASTRAZENECA-2012SE84108

PATIENT
  Age: 25 Year
  Sex: Female

DRUGS (7)
  1. SEROQUEL XR [Suspect]
     Route: 048
     Dates: start: 20120831
  2. SEROQUEL XR [Suspect]
     Route: 048
  3. SEROQUEL XR [Suspect]
     Route: 048
  4. AMBIEN [Concomitant]
  5. IBUPROFEN [Concomitant]
  6. TYLENOL [Concomitant]
  7. BUSPAR [Concomitant]

REACTIONS (4)
  - Rash [Unknown]
  - Furuncle [Unknown]
  - Hypersensitivity [Unknown]
  - Muscle twitching [Not Recovered/Not Resolved]
